FAERS Safety Report 4368472-9 (Version None)
Quarter: 2004Q2

REPORT INFORMATION
  Report Type: 
  Country: None (occurrence: None)
  Receive Date: 20040528
  Receipt Date: 20040524
  Transmission Date: 20050107
  Serious: Yes (Death)
  Sender: FDA-Public Use
  Company Number: TCI2004A01763

PATIENT
  Age: 83 Year
  Sex: Male

DRUGS (6)
  1. LANSOPRAZOLE [Suspect]
     Indication: REFLUX OESOPHAGITIS
     Dosage: 30 MG (30 MG, 1 IN 1 D) PER ORAL
     Route: 048
     Dates: start: 20040320, end: 20040325
  2. ISOSORBIDE MONONITRATE [Concomitant]
  3. HARNAL (TAMSULOSIN HYDROCHLORIDE) [Concomitant]
  4. ESRON B (LACTEC) [Concomitant]
  5. SUBVITAN N (SUBVITAN) [Concomitant]
  6. FUROSEMIDE [Concomitant]

REACTIONS (10)
  - BLOOD GLUCOSE INCREASED [None]
  - BLOOD PRESSURE DECREASED [None]
  - CIRCULATORY COLLAPSE [None]
  - DISSEMINATED INTRAVASCULAR COAGULATION [None]
  - ERYTHEMA [None]
  - HEPATITIS FULMINANT [None]
  - HYPOGLYCAEMIA [None]
  - LOSS OF CONSCIOUSNESS [None]
  - MULTI-ORGAN FAILURE [None]
  - OXYGEN SATURATION IMMEASURABLE [None]
